FAERS Safety Report 4954985-5 (Version None)
Quarter: 2006Q1

REPORT INFORMATION
  Report Type: 
  Country: None (occurrence: None)
  Receive Date: 20060327
  Receipt Date: 20060320
  Transmission Date: 20060701
  Serious: Yes (Hospitalization)
  Sender: FDA-Public Use
  Company Number: FR-SANOFI-SYNTHELABO-A02200600765

PATIENT
  Sex: Male
  Weight: 79 kg

DRUGS (5)
  1. ELOXATIN [Suspect]
     Indication: RECTAL CANCER
     Route: 042
     Dates: start: 20060214, end: 20060214
  2. FLUOROURACIL [Concomitant]
     Indication: RECTAL CANCER
     Route: 042
     Dates: start: 20060214, end: 20060214
  3. ELVORINE [Concomitant]
     Indication: DRUG USE FOR UNKNOWN INDICATION
     Route: 042
     Dates: start: 20060214, end: 20060214
  4. ZOPHREN [Concomitant]
     Indication: PREMEDICATION
     Route: 065
  5. SOLU-MEDROL [Concomitant]
     Indication: PREMEDICATION
     Route: 065

REACTIONS (6)
  - APHASIA [None]
  - DYSAESTHESIA [None]
  - DYSPHAGIA [None]
  - DYSPNOEA [None]
  - NEUROTOXICITY [None]
  - PARAESTHESIA [None]
